FAERS Safety Report 21006618 (Version 2)
Quarter: 2022Q4

REPORT INFORMATION
  Report Type: Report from Study
  Country: US (occurrence: US)
  Receive Date: 20220625
  Receipt Date: 20221006
  Transmission Date: 20230112
  Serious: Yes (Other)
  Sender: FDA-Public Use
  Company Number: US-ABBVIE-22K-163-4445161-00

PATIENT
  Sex: Male

DRUGS (1)
  1. IMBRUVICA [Suspect]
     Active Substance: IBRUTINIB
     Indication: Chronic lymphocytic leukaemia
     Route: 048
     Dates: start: 20160404

REACTIONS (7)
  - Blood iron decreased [Unknown]
  - Diarrhoea [Unknown]
  - Anaemia [Unknown]
  - Immunoglobulins decreased [Unknown]
  - Platelet count decreased [Unknown]
  - Sinus congestion [Unknown]
  - Upper-airway cough syndrome [Unknown]
